FAERS Safety Report 6869172-3 (Version None)
Quarter: 2010Q3

REPORT INFORMATION
  Report Type: 
  Country: None (occurrence: None)
  Receive Date: 20100722
  Receipt Date: 20080708
  Transmission Date: 20110219
  Serious: No
  Sender: FDA-Public Use
  Company Number: US-PFIZER INC-2008057334

PATIENT
  Sex: Female
  Weight: 56.818 kg

DRUGS (4)
  1. CHANTIX [Suspect]
     Indication: EX-TOBACCO USER
     Route: 048
     Dates: start: 20080605, end: 20080626
  2. ACETYLSALICYLIC ACID [Concomitant]
  3. VALSARTAN [Concomitant]
  4. NEXIUM [Concomitant]

REACTIONS (2)
  - NIGHTMARE [None]
  - SOMNAMBULISM [None]
